FAERS Safety Report 6897285-9 (Version None)
Quarter: 2010Q3

REPORT INFORMATION
  Report Type: 
  Country: None (occurrence: None)
  Receive Date: 20100802
  Receipt Date: 20070515
  Transmission Date: 20110219
  Serious: No
  Sender: FDA-Public Use
  Company Number: US-PFIZER INC-2007016151

PATIENT
  Sex: Male
  Weight: 129.3 kg

DRUGS (4)
  1. LYRICA [Suspect]
     Indication: COMPLEX REGIONAL PAIN SYNDROME
     Dates: start: 20070213
  2. BIESTROGEN [Concomitant]
  3. CALCIUM [Concomitant]
  4. VITAMINS [Concomitant]

REACTIONS (2)
  - FEELING ABNORMAL [None]
  - TINNITUS [None]
